FAERS Safety Report 9645369 (Version 4)
Quarter: 2014Q1

REPORT INFORMATION
  Report Type: Spontaneous
  Country: US (occurrence: US)
  Receive Date: 20131025
  Receipt Date: 20140205
  Transmission Date: 20141002
  Serious: Yes (Other)
  Sender: FDA-Public Use
  Company Number: US-MERCK-1310USA010310

PATIENT
  Age: 58 Year
  Sex: Male
  Weight: 72.74 kg

DRUGS (4)
  1. VICTRELIS [Suspect]
     Indication: HEPATITIS C
     Dosage: 800 MG, THREE TIMES A DAY
     Route: 048
  2. PEGINTRON [Suspect]
     Indication: HEPATITIS C
     Dosage: REDIPEN; 150 MICROGRAM/0.5 ML, EVERY WEEK (4SYR/PK)
     Route: 058
  3. ZOFRAN [Concomitant]
  4. CHLORPHENIRAMINE MALEATE (+) HYDROCODONE BITARTRATE (+) PHENYLEPHRINE [Concomitant]

REACTIONS (8)
  - Hepatic cancer [Unknown]
  - Lymphoma [Unknown]
  - Weight decreased [Unknown]
  - Diarrhoea [Not Recovered/Not Resolved]
  - Faeces discoloured [Unknown]
  - Weight decreased [Unknown]
  - Asthenia [Unknown]
  - White blood cell count decreased [Unknown]
